FAERS Safety Report 6914492-7 (Version None)
Quarter: 2010Q3

REPORT INFORMATION
  Report Type: 
  Country: None (occurrence: None)
  Receive Date: 20100809
  Receipt Date: 20100727
  Transmission Date: 20110219
  Serious: Yes (Other)
  Sender: FDA-Public Use
  Company Number: KR-ELI_LILLY_AND_COMPANY-KR201008000899

PATIENT
  Age: 75 Year
  Sex: Female

DRUGS (1)
  1. FORTEO [Suspect]
     Indication: OSTEOPOROSIS
     Dosage: UNK, UNKNOWN

REACTIONS (4)
  - CARBOHYDRATE ANTIGEN 125 INCREASED [None]
  - PELVIC VENOUS THROMBOSIS [None]
  - PULMONARY ARTERY THROMBOSIS [None]
  - VENA CAVA THROMBOSIS [None]
